FAERS Safety Report 15259741 (Version 2)
Quarter: 2018Q3

REPORT INFORMATION
  Report Type: Report from Study
  Country: CN (occurrence: CN)
  Receive Date: 20180809
  Receipt Date: 20180816
  Transmission Date: 20181010
  Serious: Yes (Other)
  Sender: FDA-Public Use
  Company Number: CN-JNJFOC-20180808325

PATIENT
  Age: 67 Year
  Sex: Female

DRUGS (3)
  1. XARELTO [Suspect]
     Active Substance: RIVAROXABAN
     Indication: ATRIAL FIBRILLATION
     Route: 048
     Dates: start: 2018, end: 20180731
  2. XARELTO [Suspect]
     Active Substance: RIVAROXABAN
     Indication: ATRIAL FIBRILLATION
     Route: 048
     Dates: start: 20180506, end: 201805
  3. XARELTO [Suspect]
     Active Substance: RIVAROXABAN
     Indication: ATRIAL FIBRILLATION
     Route: 048
     Dates: start: 201805

REACTIONS (6)
  - Off label use [Unknown]
  - Gingival bleeding [Recovering/Resolving]
  - Platelet count decreased [Recovering/Resolving]
  - Petechiae [Recovering/Resolving]
  - Underdose [Unknown]
  - Gastritis erosive [Recovering/Resolving]

NARRATIVE: CASE EVENT DATE: 2018
